FAERS Safety Report 9303370 (Version 1)
Quarter: 2013Q2

REPORT INFORMATION
  Report Type: Spontaneous
  Country: US (occurrence: US)
  Receive Date: 20130522
  Receipt Date: 20130522
  Transmission Date: 20140414
  Serious: No
  Sender: FDA-Public Use
  Company Number: US-PFIZER INC-2013155884

PATIENT
  Sex: Female

DRUGS (3)
  1. CELEBREX [Suspect]
     Indication: ARTHRALGIA
     Dosage: 400 MG, UNK
  2. PRILOSEC [Concomitant]
     Indication: GASTRIC DISORDER
     Dosage: UNK
  3. PRISTIQ [Concomitant]
     Dosage: UNK

REACTIONS (6)
  - Skin reaction [Unknown]
  - Rash [Unknown]
  - Swollen tongue [Unknown]
  - Pharyngeal oedema [Unknown]
  - Joint swelling [Unknown]
  - Local swelling [Unknown]
